FAERS Safety Report 9156720 (Version 2)
Quarter: 2013Q1

REPORT INFORMATION
  Report Type: Spontaneous
  Country: JP (occurrence: None)
  Receive Date: 20130206
  Receipt Date: 20130212
  Transmission Date: 20140127
  Serious: Yes (Other)
  Sender: FDA-Public Use
  Company Number: ENT 2013-0024

PATIENT
  Sex: Female

DRUGS (1)
  1. COMTAN [Suspect]
     Indication: PARKINSON^S DISEASE
     Route: 048

REACTIONS (4)
  - Parkinson^s disease [None]
  - Blood pressure increased [None]
  - Chills [None]
  - Tremor [None]
